FAERS Safety Report 24424829 (Version 1)
Quarter: 2024Q4

REPORT INFORMATION
  Report Type: Spontaneous
  Country: FR (occurrence: FR)
  Receive Date: 20241010
  Receipt Date: 20241010
  Transmission Date: 20250114
  Serious: Yes (Other)
  Sender: MERCK
  Company Number: None

PATIENT
  Age: 57 Year
  Sex: Male
  Weight: 68 kg

DRUGS (17)
  1. CANCIDAS [Suspect]
     Active Substance: CASPOFUNGIN ACETATE
     Indication: Product used for unknown indication
     Dosage: 70 MILLIGRAM, QD
     Route: 042
     Dates: start: 20240904, end: 20240909
  2. CILASTATIN SODIUM\IMIPENEM [Suspect]
     Active Substance: CILASTATIN SODIUM\IMIPENEM
     Indication: Febrile bone marrow aplasia
     Dosage: 1000 MILLIGRAM, Q8H
     Route: 042
     Dates: start: 20240903, end: 20240910
  3. CYTARABINE [Suspect]
     Active Substance: CYTARABINE
     Indication: Diffuse large B-cell lymphoma stage IV
     Dosage: 2928 MILLIGRAM, ONCE
     Route: 042
     Dates: start: 20240824, end: 20240828
  4. LEVOFLOXACIN [Concomitant]
     Active Substance: LEVOFLOXACIN
  5. PANTOPRAZOLE [Concomitant]
     Active Substance: PANTOPRAZOLE
  6. FUROSEMIDE [Concomitant]
     Active Substance: FUROSEMIDE
  7. OXAZEPAM [Concomitant]
     Active Substance: OXAZEPAM
  8. MELPHALAN [Suspect]
     Active Substance: MELPHALAN
     Indication: Diffuse large B-cell lymphoma
     Dosage: 256 MILLIGRAM, ONCE
     Route: 042
     Dates: start: 20240828, end: 20240828
  9. DIETARY SUPPLEMENT [Suspect]
     Active Substance: DIETARY SUPPLEMENT
     Indication: Parenteral nutrition
     Dosage: 1265 KCAL/DAY, QD
     Route: 042
     Dates: start: 20240905, end: 20240909
  10. DIETARY SUPPLEMENT [Suspect]
     Active Substance: DIETARY SUPPLEMENT
     Dosage: 1265 KCAL/DAY, QD
     Route: 042
     Dates: start: 20240830, end: 20240903
  11. AMLODIPINE [Concomitant]
     Active Substance: AMLODIPINE BESYLATE
  12. CARMUSTINE [Suspect]
     Active Substance: CARMUSTINE
     Indication: Diffuse large B-cell lymphoma stage IV
     Dosage: 549 MILLIGRAM, ONCE
     Route: 042
     Dates: start: 20240824, end: 20240824
  13. ONDANSETRON [Concomitant]
     Active Substance: ONDANSETRON
  14. ETOPOSIDE [Suspect]
     Active Substance: ETOPOSIDE
     Indication: Diffuse large B-cell lymphoma stage IV
     Dosage: 1464 MILLIGRAM, ONCE
     Route: 042
     Dates: start: 20240824, end: 20240828
  15. BACTRIM [Concomitant]
     Active Substance: SULFAMETHOXAZOLE\TRIMETHOPRIM
  16. VALACYCLOVIR HYDROCHLORIDE [Concomitant]
     Active Substance: VALACYCLOVIR HYDROCHLORIDE
  17. HYDROCORTISONE [Concomitant]
     Active Substance: HYDROCORTISONE

REACTIONS (1)
  - Cholestasis [Recovering/Resolving]

NARRATIVE: CASE EVENT DATE: 20240904
